FAERS Safety Report 4889895-5 (Version None)
Quarter: 2006Q1

REPORT INFORMATION
  Report Type: 
  Country: None (occurrence: None)
  Receive Date: 20060124
  Receipt Date: 20050406
  Transmission Date: 20060701
  Serious: Yes (Hospitalization)
  Sender: FDA-Public Use
  Company Number: US-MERCK-0504USA01040

PATIENT
  Age: 58 Year
  Sex: Female
  Weight: 93 kg

DRUGS (19)
  1. VIOXX [Suspect]
     Indication: ARTHRITIS
     Route: 048
     Dates: start: 20030904, end: 20040505
  2. PAXIL [Concomitant]
     Route: 065
  3. ZANTAC [Concomitant]
     Route: 065
  4. KEFLEX [Concomitant]
     Route: 065
  5. ATENOLOL [Concomitant]
     Route: 065
  6. VICODIN [Concomitant]
     Route: 065
  7. NAPROXEN [Concomitant]
     Route: 065
  8. FOSAMAX [Concomitant]
     Route: 065
  9. NAPROSYN [Concomitant]
     Route: 065
  10. CELEBREX [Concomitant]
     Route: 065
  11. MOBIC [Concomitant]
     Route: 065
  12. PROCARDIA [Concomitant]
     Route: 065
  13. PRAVACHOL [Concomitant]
     Route: 065
  14. IBUPROFEN [Concomitant]
     Route: 065
  15. CLARITIN [Concomitant]
     Route: 065
  16. FLEXERIL [Concomitant]
     Route: 065
  17. DICLOFENAC [Concomitant]
     Route: 065
  18. POTASSIUM (UNSPECIFIED) [Concomitant]
     Route: 065
  19. PREMARIN [Concomitant]
     Route: 065

REACTIONS (9)
  - BACK PAIN [None]
  - CHEST PAIN [None]
  - CHOLECYSTITIS [None]
  - CHOLELITHIASIS [None]
  - DYSPNOEA [None]
  - FOOT FRACTURE [None]
  - HYPERHIDROSIS [None]
  - MYOCARDIAL INFARCTION [None]
  - OEDEMA PERIPHERAL [None]
